FAERS Safety Report 8394458-3 (Version None)
Quarter: 2012Q2

REPORT INFORMATION
  Report Type: 
  Country: None (occurrence: None)
  Receive Date: 20120530
  Receipt Date: 20120522
  Transmission Date: 20120825
  Serious: Yes (Other)
  Sender: FDA-Public Use
  Company Number: PHEH2011US06727

PATIENT
  Sex: Female

DRUGS (1)
  1. GILENYA [Suspect]
     Indication: RELAPSING-REMITTING MULTIPLE SCLEROSIS
     Dosage: 0.5 MG, QD
     Route: 048
     Dates: start: 20110923

REACTIONS (6)
  - NEOPLASM MALIGNANT [None]
  - DIZZINESS [None]
  - BACK PAIN [None]
  - NAUSEA [None]
  - FATIGUE [None]
  - DIARRHOEA [None]
